FAERS Safety Report 7487055-5 (Version None)
Quarter: 2011Q2

REPORT INFORMATION
  Report Type: 
  Country: None (occurrence: None)
  Receive Date: 20110518
  Receipt Date: 20110509
  Transmission Date: 20111010
  Serious: Yes (Other)
  Sender: FDA-Public Use
  Company Number: US-BIOGENIDEC-2011BI017388

PATIENT
  Age: 48 Year
  Sex: Female

DRUGS (34)
  1. TYSABRI [Suspect]
     Indication: MULTIPLE SCLEROSIS
     Route: 042
     Dates: start: 20070718
  2. WELLBUTRIN XL [Concomitant]
     Route: 048
  3. VITAMIN E [Concomitant]
     Route: 048
  4. CELEXA [Concomitant]
     Route: 048
  5. BACLOFEN [Concomitant]
     Route: 048
  6. NEURONTIN [Concomitant]
     Route: 048
  7. TRICOR [Concomitant]
     Route: 048
  8. MECLIZINE [Concomitant]
     Route: 048
  9. CENTRUM [Concomitant]
     Route: 048
  10. VITAMIN B6 [Concomitant]
     Route: 048
  11. PEDIALYTE [Concomitant]
  12. ASPIRIN [Concomitant]
  13. CALCIUM CARBONATE [Concomitant]
     Route: 048
  14. NEURONTIN [Concomitant]
     Route: 048
  15. VITAMIN B-12 [Concomitant]
     Route: 048
  16. IMODIUM [Concomitant]
  17. TRAMADOL HCL [Concomitant]
     Route: 048
  18. NEURONTIN [Concomitant]
     Route: 048
  19. VITAMIN D [Concomitant]
     Route: 048
  20. IMITREX [Concomitant]
     Indication: MIGRAINE
     Route: 048
  21. TEGRETOL-XR [Concomitant]
  22. ATENOLOL [Concomitant]
     Route: 048
  23. DIOVAN [Concomitant]
     Route: 048
  24. OMEPRAZOLE [Concomitant]
     Route: 048
  25. HYOSCYAMINE SULFATE [Concomitant]
  26. MUCINEX DM [Concomitant]
  27. TRIAMTERENE [Concomitant]
     Route: 048
  28. SEROQUEL [Concomitant]
     Route: 048
  29. EPIDRIN [Concomitant]
     Route: 048
  30. HYDROCHLOROTHIAZIDE [Concomitant]
     Route: 048
  31. ASPIRIN [Concomitant]
     Route: 048
  32. FISH OIL [Concomitant]
     Route: 048
  33. FISH OIL [Concomitant]
     Route: 048
  34. PROMETHAZINE [Concomitant]

REACTIONS (1)
  - ELECTROENCEPHALOGRAM ABNORMAL [None]
